FAERS Safety Report 9156593 (Version 1)
Quarter: 2013Q1

REPORT INFORMATION
  Report Type: Spontaneous
  Country: US (occurrence: None)
  Receive Date: 20130308
  Receipt Date: 20130308
  Transmission Date: 20140127
  Serious: Yes (Hospitalization)
  Sender: FDA-Public Use
  Company Number: None

PATIENT
  Sex: Male
  Weight: 91.1 kg

DRUGS (1)
  1. ZOLEDRONIC ACID (ZOLENDRONATE, ZOMETA) [Suspect]

REACTIONS (3)
  - Prostatic specific antigen increased [None]
  - Renal injury [None]
  - Dialysis [None]
